FAERS Safety Report 10064548 (Version 1)
Quarter: 2014Q2

REPORT INFORMATION
  Report Type: Spontaneous
  Country: US (occurrence: None)
  Receive Date: 20140407
  Receipt Date: 20140407
  Transmission Date: 20141212
  Serious: Yes (Other)
  Sender: FDA-Public Use
  Company Number: None

PATIENT
  Age: 39 Year
  Sex: Female
  Weight: 63.05 kg

DRUGS (2)
  1. MIRVASO [Suspect]
     Indication: ROSACEA
     Dosage: THIN LAYER ONCE DAILY.APPLIED TO A SURFACE, USUALLY THE SKIN
     Dates: start: 20140317, end: 20140330
  2. MIRVASO [Suspect]
     Indication: ERYTHEMA
     Dosage: THIN LAYER ONCE DAILY.APPLIED TO A SURFACE, USUALLY THE SKIN
     Dates: start: 20140317, end: 20140330

REACTIONS (3)
  - Flushing [None]
  - Erythema [None]
  - Condition aggravated [None]
